FAERS Safety Report 24395455 (Version 1)
Quarter: 2024Q4

REPORT INFORMATION
  Report Type: Report from Study
  Country: CA (occurrence: CA)
  Receive Date: 20241004
  Receipt Date: 20241004
  Transmission Date: 20250115
  Serious: Yes (Hospitalization)
  Sender: ABBVIE
  Company Number: CA-ABBVIE-5905090

PATIENT
  Age: 34 Year
  Sex: Female

DRUGS (1)
  1. SKYRIZI [Suspect]
     Active Substance: RISANKIZUMAB-RZAA
     Indication: Crohn^s disease
     Dosage: FREQUENCY: WEEK 8
     Route: 042
     Dates: start: 20240802

REACTIONS (2)
  - Constipation [Not Recovered/Not Resolved]
  - Colonoscopy abnormal [Not Recovered/Not Resolved]

NARRATIVE: CASE EVENT DATE: 20240703
